FAERS Safety Report 9932277 (Version 1)
Quarter: 2014Q1

REPORT INFORMATION
  Report Type: Spontaneous
  Country: US (occurrence: US)
  Receive Date: 20140228
  Receipt Date: 20140228
  Transmission Date: 20141002
  Serious: No
  Sender: FDA-Public Use
  Company Number: US-ABBVIE-13P-163-1169370-00

PATIENT
  Sex: Male
  Weight: 84.44 kg

DRUGS (3)
  1. ANDROGEL [Suspect]
     Indication: BLOOD TESTOSTERONE DECREASED
     Dosage: 5 GM PACKETS
     Dates: start: 2002
  2. TRUVADA [Concomitant]
     Indication: PRODUCT USED FOR UNKNOWN INDICATION
  3. PEGASYS [Concomitant]
     Indication: HEPATITIS C
     Dates: start: 201307

REACTIONS (1)
  - Application site pain [Recovered/Resolved]
